FAERS Safety Report 7522270-3 (Version None)
Quarter: 2011Q2

REPORT INFORMATION
  Report Type: 
  Country: None (occurrence: None)
  Receive Date: 20110603
  Receipt Date: 20110526
  Transmission Date: 20111010
  Serious: Yes (Hospitalization, Other)
  Sender: FDA-Public Use
  Company Number: US-ABBOTT-11P-163-0728711-00

PATIENT
  Sex: Female
  Weight: 93.07 kg

DRUGS (15)
  1. DIOVAN [Concomitant]
     Indication: HYPERTENSION
  2. LEVOXYL [Concomitant]
     Indication: THYROID NEOPLASM
  3. VITAMIN B-12 [Concomitant]
     Indication: VITAMIN SUPPLEMENTATION
  4. HUMIRA [Suspect]
     Indication: RHEUMATOID ARTHRITIS
     Dates: start: 20090101, end: 20090101
  5. WARFARIN SODIUM [Concomitant]
     Indication: THROMBOSIS
  6. MAGNESIUM OXIDE [Concomitant]
     Indication: PRODUCT USED FOR UNKNOWN INDICATION
  7. POTASSIUM BICARBONATE [Concomitant]
     Indication: MINERAL SUPPLEMENTATION
  8. TRAMADOL HYDROCHLORIDE [Concomitant]
     Indication: RHEUMATOID ARTHRITIS
  9. DETROL [Concomitant]
     Indication: HYPERTONIC BLADDER
  10. KLOR-CON [Concomitant]
     Indication: MINERAL SUPPLEMENTATION
     Dosage: 6 TAB 4 TIMES PER DAY
  11. SPIRONOLACTONE [Concomitant]
     Indication: HYPERTENSION
  12. METOPROLOL TARTRATE [Concomitant]
     Indication: ATRIAL FIBRILLATION
  13. BONIVA [Concomitant]
     Indication: OSTEOPOROSIS
  14. RYTHMOL SR [Concomitant]
     Indication: ATRIAL FIBRILLATION
  15. HUMIRA [Suspect]
     Dates: start: 20110525

REACTIONS (11)
  - NEUROPATHY PERIPHERAL [None]
  - ULCER HAEMORRHAGE [None]
  - BLOOD PRESSURE DECREASED [None]
  - MALABSORPTION [None]
  - BALANCE DISORDER [None]
  - ORTHOSTATIC HYPOTENSION [None]
  - HAEMOGLOBIN DECREASED [None]
  - PARAESTHESIA [None]
  - GAIT DISTURBANCE [None]
  - ULCER [None]
  - FAECES DISCOLOURED [None]
